FAERS Safety Report 16740522 (Version 1)
Quarter: 2019Q3

REPORT INFORMATION
  Report Type: Spontaneous
  Country: US (occurrence: US)
  Receive Date: 20190709
  Receipt Date: 20190709
  Transmission Date: 20191005
  Serious: No
  Sender: FDA-Public Use
  Company Number: None

PATIENT
  Age: 78 Year
  Sex: Female

DRUGS (1)
  1. REBIF REBIDOSE [Suspect]
     Active Substance: INTERFERON BETA-1A
     Dates: start: 201603

REACTIONS (3)
  - Incorrect dose administered by device [None]
  - Injection site extravasation [None]
  - Wrong technique in product usage process [None]

NARRATIVE: CASE EVENT DATE: 20190709
